FAERS Safety Report 9881847 (Version 1)
Quarter: 2014Q1

REPORT INFORMATION
  Report Type: Spontaneous
  Country: US (occurrence: US)
  Receive Date: 20140207
  Receipt Date: 20140207
  Transmission Date: 20141002
  Serious: Yes (Other)
  Sender: FDA-Public Use
  Company Number: US-PFIZER INC-2014034071

PATIENT
  Sex: Female

DRUGS (1)
  1. LYRICA [Suspect]
     Dosage: UNK

REACTIONS (6)
  - Deformity thorax [Unknown]
  - Swelling face [Recovering/Resolving]
  - Swelling [Recovering/Resolving]
  - Eye disorder [Unknown]
  - Eyelid ptosis [Unknown]
  - Musculoskeletal stiffness [Unknown]
